FAERS Safety Report 7070919-4 (Version None)
Quarter: 2010Q4

REPORT INFORMATION
  Report Type: 
  Country: None (occurrence: None)
  Receive Date: 20101029
  Receipt Date: 20101022
  Transmission Date: 20110411
  Serious: Yes (Other)
  Sender: FDA-Public Use
  Company Number: JP-BAYER-200913178BYL

PATIENT
  Age: 59 Year
  Sex: Male
  Weight: 61 kg

DRUGS (19)
  1. NEXAVAR [Suspect]
     Indication: RENAL CELL CARCINOMA
     Dosage: TOTAL DAILY DOSE: 800 MG  UNIT DOSE: 200 MG
     Route: 048
     Dates: start: 20090409
  2. MERCAZOLE [Concomitant]
     Route: 048
  3. FERROUS CITRATE [Concomitant]
     Indication: ANAEMIA
     Dosage: TOTAL DAILY DOSE: 150 MG  UNIT DOSE: 50 MG
     Route: 048
     Dates: end: 20100216
  4. ALDACTONE [Concomitant]
     Indication: OEDEMA
     Route: 048
  5. LASIX [Concomitant]
     Indication: OEDEMA
     Dosage: TOTAL DAILY DOSE: 80 MG
     Route: 048
     Dates: start: 20090507
  6. LASIX [Concomitant]
     Dosage: TOTAL DAILY DOSE: 40 MG
     Route: 048
     Dates: start: 20090401
  7. LASIX [Concomitant]
     Dosage: TOTAL DAILY DOSE: 40 MG
     Route: 048
     Dates: start: 20090604
  8. HALCION [Concomitant]
     Indication: INSOMNIA
     Dosage: UNIT DOSE: 0.25 MG
     Route: 048
  9. POSTERISAN [Concomitant]
     Route: 061
  10. PANTOSIN [Concomitant]
     Dosage: TOTAL DAILY DOSE: 300 MG  UNIT DOSE: 100 MG
     Route: 048
  11. MAGLAX [Concomitant]
     Dosage: TOTAL DAILY DOSE: 1500 MG  UNIT DOSE: 500 MG
     Route: 048
  12. ALLOID G [Concomitant]
     Dosage: UNIT DOSE: 3 ML
     Route: 048
  13. LOXONIN [Concomitant]
     Dosage: TOTAL DAILY DOSE: 180 MG  UNIT DOSE: 60 MG
     Route: 048
  14. MYONAL [Concomitant]
     Dosage: TOTAL DAILY DOSE: 150 MG  UNIT DOSE: 50 MG
     Route: 048
  15. MUCOSTA [Concomitant]
     Dosage: TOTAL DAILY DOSE: 300 MG  UNIT DOSE: 100 MG
     Route: 048
  16. SUMILU [Concomitant]
     Dosage: 1-2 TIMES/DAY
     Route: 062
  17. PYRINAZIN [Concomitant]
     Indication: PAIN
     Route: 048
  18. JU-KAMA [Concomitant]
     Dosage: TOTAL DAILY DOSE: 2.01 G  UNIT DOSE: 0.67 G
     Route: 048
  19. PROMAC [Concomitant]
     Dosage: UNIT DOSE: 75 MG
     Route: 048

REACTIONS (3)
  - DIARRHOEA [None]
  - HYPERTENSION [None]
  - SUPRAVENTRICULAR TACHYCARDIA [None]
